FAERS Safety Report 14745315 (Version 3)
Quarter: 2018Q2

REPORT INFORMATION
  Report Type: Spontaneous
  Country: US (occurrence: US)
  Receive Date: 20180411
  Receipt Date: 20180621
  Transmission Date: 20180711
  Serious: No
  Sender: FDA-Public Use
  Company Number: US-ASTRAZENECA-2008BM07036

PATIENT
  Age: 704 Month
  Sex: Male
  Weight: 104.3 kg

DRUGS (12)
  1. BYETTA [Suspect]
     Active Substance: EXENATIDE
     Indication: TYPE 2 DIABETES MELLITUS
     Route: 058
     Dates: start: 20080406, end: 200805
  2. HUMALOG [Concomitant]
     Active Substance: INSULIN LISPRO
     Dosage: AT NIGHT.
  3. BYETTA [Suspect]
     Active Substance: EXENATIDE
     Indication: TYPE 2 DIABETES MELLITUS
     Route: 058
     Dates: start: 2009
  4. BYDUREON BCISE [Suspect]
     Active Substance: EXENATIDE
     Indication: TYPE 2 DIABETES MELLITUS
     Dosage: 2 MG WEEK
     Route: 058
     Dates: start: 20180330
  5. EXENATIDE. [Concomitant]
     Active Substance: EXENATIDE
     Dosage: 10MCG PEN, DISPOSABLE DEVICE
  6. ACTOS [Concomitant]
     Active Substance: PIOGLITAZONE HYDROCHLORIDE
     Indication: TYPE 2 DIABETES MELLITUS
     Dosage: UNK
  7. LEVEMIR [Concomitant]
     Active Substance: INSULIN DETEMIR
  8. NOVOLOG [Concomitant]
     Active Substance: INSULIN ASPART
     Dosage: THREE TIMES A DAY
  9. BYETTA [Suspect]
     Active Substance: EXENATIDE
     Indication: TYPE 2 DIABETES MELLITUS
     Route: 058
     Dates: start: 20080512
  10. LANTUS [Concomitant]
     Active Substance: INSULIN GLARGINE
     Dosage: AT NIGHT.
  11. EXENATIDE. [Concomitant]
     Active Substance: EXENATIDE
     Dosage: 5MCG PEN, DISPOSABLE DEVICE
  12. GLUCOPHAGE [Concomitant]
     Active Substance: METFORMIN HYDROCHLORIDE
     Dosage: UNK
     Dates: end: 20080406

REACTIONS (6)
  - Injection site haemorrhage [Unknown]
  - Increased appetite [Not Recovered/Not Resolved]
  - Hepatitis C [Unknown]
  - Incorrect dose administered [Unknown]
  - Blood glucose increased [Unknown]
  - Device issue [Unknown]

NARRATIVE: CASE EVENT DATE: 200804
